FAERS Safety Report 23679758 (Version 1)
Quarter: 2024Q1

REPORT INFORMATION
  Report Type: Spontaneous
  Country: CA (occurrence: CA)
  Receive Date: 20240327
  Receipt Date: 20240327
  Transmission Date: 20240410
  Serious: Yes (Other)
  Sender: FDA-Public Use
  Company Number: CA-TEVA-VS-3175054

PATIENT
  Age: 36 Year
  Sex: Female

DRUGS (2)
  1. PREDNISONE [Suspect]
     Active Substance: PREDNISONE
     Indication: Product used for unknown indication
     Dosage: DOSAGE FORM: NOT SPECIFIED
     Route: 065
  2. BENLYSTA [Suspect]
     Active Substance: BELIMUMAB
     Indication: Systemic lupus erythematosus
     Dosage: DOSAGE FORM: NOT SPECIFIED
     Route: 065

REACTIONS (9)
  - Asthenia [Unknown]
  - Fatigue [Unknown]
  - Headache [Unknown]
  - Mood altered [Unknown]
  - Renal impairment [Unknown]
  - Sleep disorder [Unknown]
  - Stress [Unknown]
  - Blood creatinine increased [Unknown]
  - Systemic lupus erythematosus [Unknown]
